FAERS Safety Report 13910331 (Version 1)
Quarter: 2017Q3

REPORT INFORMATION
  Report Type: Spontaneous
  Country: US (occurrence: US)
  Receive Date: 20170828
  Receipt Date: 20170828
  Transmission Date: 20171127
  Serious: Yes (Hospitalization)
  Sender: FDA-Public Use
  Company Number: US-G+W LABS-GW2017US000238

PATIENT

DRUGS (2)
  1. DOXYCYCLINE. [Suspect]
     Active Substance: DOXYCYCLINE
     Indication: RASH
     Dosage: UNK
     Route: 065
  2. BACTRIM [Suspect]
     Active Substance: SULFAMETHOXAZOLE\TRIMETHOPRIM
     Indication: RASH
     Dosage: UNK
     Route: 065

REACTIONS (4)
  - Hypereosinophilic syndrome [Recovering/Resolving]
  - Respiratory failure [Recovering/Resolving]
  - Lung infiltration [Recovering/Resolving]
  - Eosinophilic pneumonia [Recovering/Resolving]
